FAERS Safety Report 24303195 (Version 1)
Quarter: 2024Q3

REPORT INFORMATION
  Report Type: Spontaneous
  Country: BR (occurrence: None)
  Receive Date: 20240907
  Receipt Date: 20240907
  Transmission Date: 20241016
  Serious: Yes (Other)
  Sender: Public
  Company Number: None

PATIENT
  Age: 27 Year
  Sex: Male
  Weight: 64 kg

DRUGS (1)
  1. FINASTERIDE [Suspect]
     Active Substance: FINASTERIDE

REACTIONS (4)
  - Sexual dysfunction [None]
  - Penile size reduced [None]
  - Sensory disturbance [None]
  - Male reproductive tract disorder [None]

NARRATIVE: CASE EVENT DATE: 20240907
